FAERS Safety Report 18201105 (Version 1)
Quarter: 2020Q3

REPORT INFORMATION
  Report Type: Spontaneous
  Country: US (occurrence: US)
  Receive Date: 20200826
  Receipt Date: 20200826
  Transmission Date: 20201103
  Serious: No
  Sender: FDA-Public Use
  Company Number: US-ASTRAZENECA-2020SE97402

PATIENT
  Age: 21420 Day
  Sex: Female
  Weight: 70.3 kg

DRUGS (5)
  1. SYMBICORT [Suspect]
     Active Substance: BUDESONIDE\FORMOTEROL FUMARATE DIHYDRATE
     Indication: ASTHMA LATE ONSET
     Dosage: 80/4.5 MCG INHALER TWO PUFFS TWO TIMES A DAY
     Route: 055
     Dates: start: 202003
  2. COPAXONE INJECTION [Concomitant]
     Indication: MULTIPLE SCLEROSIS
     Dosage: THREE TIMES A WEEK
     Route: 065
  3. RESCUE INHALER [Concomitant]
     Active Substance: UNSPECIFIED INGREDIENT
     Indication: ASTHMA
     Dosage: AS REQUIRED
     Route: 055
  4. SIMVASTATIN. [Concomitant]
     Active Substance: SIMVASTATIN
     Indication: BLOOD CHOLESTEROL
     Route: 048
  5. SALINE FOR NOSE [Concomitant]
     Indication: NASAL DRYNESS
     Dosage: AS REQUIRED
     Route: 045

REACTIONS (5)
  - Oropharyngeal pain [Unknown]
  - Dry throat [Unknown]
  - Dysphonia [Unknown]
  - Dyspnoea [Unknown]
  - Nasal dryness [Unknown]

NARRATIVE: CASE EVENT DATE: 20200723
